FAERS Safety Report 13300571 (Version 2)
Quarter: 2017Q1

REPORT INFORMATION
  Report Type: Spontaneous
  Country: JP (occurrence: JP)
  Receive Date: 20170307
  Receipt Date: 20170317
  Transmission Date: 20170428
  Serious: Yes (Other)
  Sender: FDA-Public Use
  Company Number: JP-ROCHE-1903040

PATIENT
  Age: 76 Year
  Sex: Female

DRUGS (6)
  1. KENACORT [Concomitant]
     Active Substance: TRIAMCINOLONE
     Dosage: UNK
     Route: 065
     Dates: start: 20141120, end: 20141120
  2. LUCENTIS [Suspect]
     Active Substance: RANIBIZUMAB
     Route: 031
     Dates: start: 20150521
  3. LUCENTIS [Suspect]
     Active Substance: RANIBIZUMAB
     Indication: RETINAL VEIN OCCLUSION
     Dosage: 0.05 ML, UNK
     Route: 031
     Dates: start: 20131024
  4. LUCENTIS [Suspect]
     Active Substance: RANIBIZUMAB
     Indication: MACULAR OEDEMA
     Route: 031
     Dates: start: 20140424
  5. KENACORT [Concomitant]
     Active Substance: TRIAMCINOLONE
     Indication: PRODUCT USED FOR UNKNOWN INDICATION
     Dosage: UNK
     Route: 065
     Dates: start: 20140612, end: 20140612
  6. KENACORT [Concomitant]
     Active Substance: TRIAMCINOLONE
     Dosage: UNK
     Route: 065
     Dates: start: 20150319, end: 20150319

REACTIONS (1)
  - Disease progression [Unknown]

NARRATIVE: CASE EVENT DATE: 20131024
